FAERS Safety Report 11988073 (Version 1)
Quarter: 2016Q1

REPORT INFORMATION
  Report Type: Spontaneous
  Country: IN (occurrence: IN)
  Receive Date: 20160202
  Receipt Date: 20160202
  Transmission Date: 20160526
  Serious: Yes (Life-Threatening, Hospitalization)
  Sender: FDA-Public Use
  Company Number: IN-WATSON-2016-01629

PATIENT
  Age: 24 Year
  Sex: Female

DRUGS (1)
  1. DILTIAZEM (UNKNOWN) [Suspect]
     Active Substance: DILTIAZEM
     Indication: SUICIDE ATTEMPT
     Dosage: 3 G, TOTAL
     Route: 065

REACTIONS (7)
  - Hypotension [Recovering/Resolving]
  - Toxicity to various agents [Recovering/Resolving]
  - Metabolic acidosis [Recovering/Resolving]
  - Atrioventricular block complete [Recovering/Resolving]
  - Hypokalaemia [Recovering/Resolving]
  - Cerebral hypoperfusion [Recovering/Resolving]
  - Suicide attempt [Recovering/Resolving]
